FAERS Safety Report 5405950-5 (Version None)
Quarter: 2007Q3

REPORT INFORMATION
  Report Type: 
  Country: None (occurrence: None)
  Receive Date: 20070803
  Receipt Date: 20070717
  Transmission Date: 20080115
  Serious: Yes (Hospitalization)
  Sender: FDA-Public Use
  Company Number: 8024339

PATIENT
  Age: 8 Year
  Sex: Male

DRUGS (6)
  1. METADATE CD [Suspect]
     Indication: ATTENTION DEFICIT/HYPERACTIVITY DISORDER
     Dosage: 20 MG
  2. DEPAKOTE [Concomitant]
  3. CLONIDINE [Concomitant]
  4. RISPERDAL [Concomitant]
  5. CLONIDINE [Concomitant]
  6. VALIUM [Concomitant]

REACTIONS (5)
  - AGITATION [None]
  - BLOOD PRESSURE INCREASED [None]
  - FLUSHING [None]
  - HEART RATE INCREASED [None]
  - SOMNOLENCE [None]
